FAERS Safety Report 5312407-9 (Version None)
Quarter: 2007Q2

REPORT INFORMATION
  Report Type: 
  Country: None (occurrence: None)
  Receive Date: 20070430
  Receipt Date: 20061010
  Transmission Date: 20071010
  Serious: No
  Sender: FDA-Public Use
  Company Number: 2006UW19623

PATIENT
  Sex: Male
  Weight: 74.5 kg

DRUGS (5)
  1. NEXIUM [Suspect]
     Indication: GASTROOESOPHAGEAL REFLUX DISEASE
     Route: 048
     Dates: start: 20060101
  2. NEXIUM [Suspect]
     Route: 048
     Dates: start: 20060901
  3. DILANTIN [Concomitant]
  4. ACCUPRIL [Concomitant]
  5. ASPIRIN [Concomitant]

REACTIONS (1)
  - BURNING SENSATION [None]
